FAERS Safety Report 11125059 (Version 3)
Quarter: 2015Q2

REPORT INFORMATION
  Report Type: Spontaneous
  Country: JP (occurrence: JP)
  Receive Date: 20150520
  Receipt Date: 20150604
  Transmission Date: 20150821
  Serious: Yes (Other)
  Sender: FDA-Public Use
  Company Number: JP-TEVA-563274ISR

PATIENT
  Age: 74 Year
  Sex: Male

DRUGS (5)
  1. 5-FU [Concomitant]
     Active Substance: FLUOROURACIL
     Indication: OESOPHAGEAL CARCINOMA
     Dosage: 800 MG/M2 CONTINUOUS INFUSION ON DAYS 1-5
     Route: 041
  2. CISPLATIN. [Suspect]
     Active Substance: CISPLATIN
     Indication: OESOPHAGEAL CARCINOMA
     Dosage: 80 MG/M2 DAILY; 80 MG/M2 ON DAY 1 (80 MILLIGRAM/MILLILITERS)
     Route: 042
  3. UNISIA [Concomitant]
     Active Substance: AMLODIPINE BESYLATE\CANDESARTAN CILEXETIL
  4. ANPLAG [Concomitant]
     Active Substance: SARPOGRELATE
  5. PLETAL [Concomitant]
     Active Substance: CILOSTAZOL

REACTIONS (2)
  - Thrombophlebitis superficial [Unknown]
  - Pulmonary embolism [Unknown]
